FAERS Safety Report 14372807 (Version 3)
Quarter: 2019Q1

REPORT INFORMATION
  Report Type: Spontaneous
  Country: US (occurrence: US)
  Receive Date: 20180110
  Receipt Date: 20190208
  Transmission Date: 20190417
  Serious: Yes (Other)
  Sender: FDA-Public Use
  Company Number: US-SA-2018SA007782

PATIENT
  Age: 76 Year
  Sex: Male

DRUGS (2)
  1. PRALUENT [Suspect]
     Active Substance: ALIROCUMAB
     Dosage: 150 MG, QM
     Route: 058
  2. PRALUENT [Suspect]
     Active Substance: ALIROCUMAB
     Indication: PRODUCT USED FOR UNKNOWN INDICATION
     Dosage: 150 MG,QOW
     Route: 058
     Dates: start: 201703

REACTIONS (5)
  - Product use issue [Unknown]
  - Pulmonary embolism [Unknown]
  - Fall [Unknown]
  - Limb injury [Unknown]
  - Pain [Unknown]

NARRATIVE: CASE EVENT DATE: 201711
